FAERS Safety Report 7436037-8 (Version None)
Quarter: 2011Q2

REPORT INFORMATION
  Report Type: 
  Country: None (occurrence: None)
  Receive Date: 20110425
  Receipt Date: 20110218
  Transmission Date: 20111010
  Serious: Yes (Other)
  Sender: FDA-Public Use
  Company Number: US-BAYER-200939972NA

PATIENT
  Age: 19 Year
  Sex: Male
  Weight: 65.76 kg

DRUGS (2)
  1. TRASYLOL [Suspect]
     Indication: AORTIC SURGERY
     Dosage: UNK
     Route: 042
     Dates: start: 20050623
  2. SOLU-MEDROL [Concomitant]
     Dosage: UNK
     Dates: start: 20080519

REACTIONS (11)
  - MENTAL DISORDER [None]
  - MULTI-ORGAN FAILURE [None]
  - PAIN [None]
  - RENAL FAILURE [None]
  - FEAR [None]
  - UNEVALUABLE EVENT [None]
  - ANHEDONIA [None]
  - INJURY [None]
  - RENAL INJURY [None]
  - ANXIETY [None]
  - DEPRESSION [None]
